FAERS Safety Report 6742736-3 (Version None)
Quarter: 2010Q2

REPORT INFORMATION
  Report Type: 
  Country: None (occurrence: None)
  Receive Date: 20100526
  Receipt Date: 20100120
  Transmission Date: 20101027
  Serious: No
  Sender: FDA-Public Use
  Company Number: US-ABBOTT-10P-163-0622950-00

PATIENT
  Sex: Female
  Weight: 88.53 kg

DRUGS (5)
  1. ZEMPLAR [Suspect]
     Indication: HYPOPARATHYROIDISM
     Dates: start: 20070101, end: 20091101
  2. LIPITOR [Concomitant]
     Indication: BLOOD CHOLESTEROL INCREASED
  3. DIOVAN [Concomitant]
     Indication: HYPERTENSION
  4. CELEXA [Concomitant]
     Indication: DEPRESSION
  5. OXYBUTYNIN CHRLORIDE [Concomitant]
     Indication: URINARY INCONTINENCE

REACTIONS (2)
  - ALOPECIA [None]
  - GASTRIC DISORDER [None]
